FAERS Safety Report 18521799 (Version 1)
Quarter: 2020Q4

REPORT INFORMATION
  Report Type: Spontaneous
  Country: DK (occurrence: DK)
  Receive Date: 20201119
  Receipt Date: 20201119
  Transmission Date: 20210114
  Serious: Yes (Other)
  Sender: FDA-Public Use
  Company Number: DK-TEVA-2020-DK-1851063

PATIENT
  Sex: Male

DRUGS (5)
  1. CICLOSPORIN [Suspect]
     Active Substance: CYCLOSPORINE
     Indication: PSORIASIS
     Dosage: 200 MILLIGRAM DAILY;
     Route: 065
     Dates: start: 201401, end: 201801
  2. SALAZOPYRIN [Concomitant]
     Active Substance: SULFASALAZINE
     Indication: PSORIATIC ARTHROPATHY
     Dosage: 2 GRAM DAILY;
     Route: 065
     Dates: start: 2003
  3. DIPHENCYPRONE [Concomitant]
     Active Substance: DIPHENCYPRONE
     Indication: ALOPECIA AREATA
     Dosage: 2% DOWN-TITRATED TO 0.001%
     Route: 065
     Dates: start: 201710, end: 201802
  4. METHOTREXATE. [Suspect]
     Active Substance: METHOTREXATE
     Indication: PSORIASIS
     Route: 048
  5. DIPHENCYPRONE [Concomitant]
     Active Substance: DIPHENCYPRONE
     Indication: ALOPECIA TOTALIS

REACTIONS (2)
  - Drug ineffective [Unknown]
  - Gastrointestinal disorder [Unknown]

NARRATIVE: CASE EVENT DATE: 201801
